FAERS Safety Report 13013999 (Version 1)
Quarter: 2016Q4

REPORT INFORMATION
  Report Type: Spontaneous
  Country: CH (occurrence: CH)
  Receive Date: 20161209
  Receipt Date: 20161209
  Transmission Date: 20170207
  Serious: Yes (Hospitalization)
  Sender: FDA-Public Use
  Company Number: CH-PFIZER INC-2016534684

PATIENT
  Age: 49 Year
  Sex: Female

DRUGS (4)
  1. XANAX [Suspect]
     Active Substance: ALPRAZOLAM
     Dosage: 1 MG, 2X/DAY
     Route: 048
     Dates: end: 201610
  2. ZYPREXA [Suspect]
     Active Substance: OLANZAPINE
     Dosage: 15 MG, 1X/DAY
     Route: 048
     Dates: end: 201610
  3. LORAMET [Suspect]
     Active Substance: LORMETAZEPAM
     Dosage: 2 MG, 1X/DAY
     Route: 048
     Dates: end: 201610
  4. FLUOXETIN AXAPHARM [Suspect]
     Active Substance: FLUOXETINE HYDROCHLORIDE
     Dosage: 40 MG, 1X/DAY
     Route: 048

REACTIONS (8)
  - Blood creatine phosphokinase increased [Recovering/Resolving]
  - Hypoventilation [Recovered/Resolved]
  - Drug abuse [Recovered/Resolved]
  - Altered state of consciousness [Recovered/Resolved]
  - Blood pressure systolic increased [None]
  - Intentional overdose [Recovered/Resolved]
  - Respiratory acidosis [Recovered/Resolved]
  - Suicide attempt [Recovered/Resolved]

NARRATIVE: CASE EVENT DATE: 20161003
